FAERS Safety Report 24297002 (Version 1)
Quarter: 2024Q3

REPORT INFORMATION
  Report Type: Spontaneous
  Country: CN (occurrence: CN)
  Receive Date: 20240909
  Receipt Date: 20240909
  Transmission Date: 20241017
  Serious: Yes (Hospitalization)
  Sender: REGENERON
  Company Number: CN-BAYER-2024A127590

PATIENT
  Age: 80 Year
  Sex: Male

DRUGS (7)
  1. EYLEA [Suspect]
     Active Substance: AFLIBERCEPT
     Indication: Antiangiogenic therapy
     Dosage: UNK, SOLUTION FOR INJECTION
     Route: 031
     Dates: start: 201811, end: 202110
  2. EYLEA [Suspect]
     Active Substance: AFLIBERCEPT
     Indication: Polypoidal choroidal vasculopathy
  3. RANIBIZUMAB [Suspect]
     Active Substance: RANIBIZUMAB
     Indication: Antiangiogenic therapy
     Dosage: UNK
     Route: 031
     Dates: start: 201211, end: 201801
  4. RANIBIZUMAB [Suspect]
     Active Substance: RANIBIZUMAB
     Indication: Polypoidal choroidal vasculopathy
  5. CONBERCEPT [Suspect]
     Active Substance: CONBERCEPT
     Indication: Antiangiogenic therapy
     Dosage: UNK
     Route: 031
     Dates: start: 201802, end: 201810
  6. CONBERCEPT [Suspect]
     Active Substance: CONBERCEPT
     Indication: Polypoidal choroidal vasculopathy
  7. IRBESARTAN [Concomitant]
     Active Substance: IRBESARTAN
     Indication: Hypertension
     Dosage: 0.15 G, QD

REACTIONS (2)
  - Cardiac failure [Recovering/Resolving]
  - Cardiomegaly [Recovering/Resolving]

NARRATIVE: CASE EVENT DATE: 20220101
